FAERS Safety Report 4923914-2 (Version None)
Quarter: 2006Q1

REPORT INFORMATION
  Report Type: 
  Country: None (occurrence: None)
  Receive Date: 20060224
  Receipt Date: 20060224
  Transmission Date: 20060701
  Serious: Yes (Other)
  Sender: FDA-Public Use
  Company Number: None

PATIENT
  Age: 68 Year
  Sex: Male

DRUGS (6)
  1. GLIPIZIDE [Suspect]
     Indication: DIABETES MELLITUS
     Dosage: TAKE 1 TABLET DAILY/ORAL
     Route: 048
     Dates: start: 20050701
  2. GLIPIZIDE [Suspect]
     Indication: HYPERGLYCAEMIA
     Dosage: TAKE 1 TABLET DAILY/ORAL
     Route: 048
     Dates: start: 20050701
  3. NORVASC [Concomitant]
  4. LIPITOR [Concomitant]
  5. DIOVAN HCT [Concomitant]
  6. INDOMETHACIN [Concomitant]

REACTIONS (3)
  - BLOOD GLUCOSE INCREASED [None]
  - PHARMACEUTICAL PRODUCT COMPLAINT [None]
  - POOR QUALITY DRUG ADMINISTERED [None]
